FAERS Safety Report 7640785-4 (Version None)
Quarter: 2011Q3

REPORT INFORMATION
  Report Type: 
  Country: None (occurrence: None)
  Receive Date: 20110721
  Receipt Date: 20110711
  Transmission Date: 20111222
  Serious: Yes (Other)
  Sender: FDA-Public Use
  Company Number: 2011SP027989

PATIENT
  Age: 25 Year
  Sex: Female
  Weight: 138 kg

DRUGS (1)
  1. IMPLANON [Suspect]
     Indication: PRODUCT USED FOR UNKNOWN INDICATION
     Dosage: 1 DF
     Dates: start: 20100408

REACTIONS (3)
  - WEIGHT INCREASED [None]
  - UTERINE POLYP [None]
  - MENORRHAGIA [None]
